FAERS Safety Report 18265373 (Version 1)
Quarter: 2020Q3

REPORT INFORMATION
  Report Type: Other
  Country: US (occurrence: US)
  Receive Date: 20200914
  Receipt Date: 20200914
  Transmission Date: 20201103
  Serious: No
  Sender: FDA-Public Use
  Company Number: US-LEADIANT BIOSCIENCES INC-2020STPI000100

PATIENT

DRUGS (4)
  1. KEPPRA [Concomitant]
     Active Substance: LEVETIRACETAM
  2. MATULANE [Suspect]
     Active Substance: PROCARBAZINE HYDROCHLORIDE
     Indication: BRAIN NEOPLASM MALIGNANT
     Dosage: 100 MILLIGRAM ON DAYS 8?21 EVERY 42 DAYS
     Route: 048
     Dates: start: 20190411
  3. LORAZEPAM. [Concomitant]
     Active Substance: LORAZEPAM
  4. GLEOSTINE [Concomitant]
     Active Substance: LOMUSTINE

REACTIONS (3)
  - Platelet count decreased [Unknown]
  - Vomiting [Unknown]
  - Hypersensitivity [Unknown]

NARRATIVE: CASE EVENT DATE: 20190411
